FAERS Safety Report 4391744-9 (Version None)
Quarter: 2004Q3

REPORT INFORMATION
  Report Type: 
  Country: None (occurrence: None)
  Receive Date: 20040707
  Receipt Date: 20030703
  Transmission Date: 20050211
  Serious: Yes (Other)
  Sender: FDA-Public Use
  Company Number: US-MERCK-0307USA00457

PATIENT
  Age: 85 Year
  Sex: Male
  Weight: 62 kg

DRUGS (8)
  1. XANAX [Concomitant]
     Route: 065
  2. ASPIRIN [Concomitant]
     Route: 065
  3. PROSCAR [Suspect]
     Indication: BENIGN PROSTATIC HYPERPLASIA
     Route: 048
     Dates: start: 19960101
  4. LASIX [Concomitant]
     Route: 065
  5. ZESTRIL [Concomitant]
     Route: 065
  6. TOPROL-XL [Concomitant]
     Route: 065
  7. ALDACTONE [Suspect]
     Indication: CARDIAC FAILURE CONGESTIVE
     Route: 065
     Dates: start: 20010101
  8. RESTORIL [Concomitant]
     Route: 065

REACTIONS (7)
  - BREAST SWELLING [None]
  - CARDIAC DISORDER [None]
  - DRUG INTERACTION POTENTIATION [None]
  - HYPERTROPHY BREAST [None]
  - NIPPLE DISORDER [None]
  - NIPPLE PAIN [None]
  - PRURITUS [None]
